FAERS Safety Report 22003090 (Version 1)
Quarter: 2023Q1

REPORT INFORMATION
  Report Type: Spontaneous
  Country: DE (occurrence: DE)
  Receive Date: 20230217
  Receipt Date: 20230217
  Transmission Date: 20230417
  Serious: Yes (Other)
  Sender: FDA-Public Use
  Company Number: None

PATIENT
  Age: 53 Year
  Sex: Male
  Weight: 87 kg

DRUGS (4)
  1. AZITHROMYCIN [Concomitant]
     Active Substance: AZITHROMYCIN
  2. PROPOFOL [Concomitant]
     Active Substance: PROPOFOL
  3. PIPERACILLIN AND TAZOBACTAM [Suspect]
     Active Substance: PIPERACILLIN SODIUM\TAZOBACTAM SODIUM
     Indication: Pneumonia
     Dosage: 4.5 G FOR 2 DAY
     Route: 042
  4. NOREPINEPHRINE [Concomitant]
     Active Substance: NOREPINEPHRINE

REACTIONS (1)
  - Rhabdomyolysis [Recovered/Resolved]

NARRATIVE: CASE EVENT DATE: 20230104
